FAERS Safety Report 25446066 (Version 1)
Quarter: 2025Q2

REPORT INFORMATION
  Report Type: Spontaneous
  Country: US (occurrence: US)
  Receive Date: 20250617
  Receipt Date: 20250617
  Transmission Date: 20250716
  Serious: Yes (Hospitalization, Other)
  Sender: BAYER HEALTHCARE PHARMACEUTICALS INC.
  Company Number: US-BAYER-2025A078283

PATIENT
  Age: 72 Year
  Sex: Male

DRUGS (2)
  1. NUBEQA [Suspect]
     Active Substance: DAROLUTAMIDE
     Dates: start: 2025
  2. NUBEQA [Suspect]
     Active Substance: DAROLUTAMIDE
     Dosage: 300 MG, BID

REACTIONS (8)
  - Dyspnoea [None]
  - Pneumothorax [None]
  - White blood cell count decreased [None]
  - Red blood cell count decreased [None]
  - Platelet count decreased [None]
  - Joint swelling [None]
  - Arthralgia [None]
  - Back pain [None]

NARRATIVE: CASE EVENT DATE: 20250101
